FAERS Safety Report 23391932 (Version 1)
Quarter: 2024Q1

REPORT INFORMATION
  Report Type: Spontaneous
  Country: US (occurrence: US)
  Receive Date: 20240111
  Receipt Date: 20240111
  Transmission Date: 20240410
  Serious: No
  Sender: FDA-Public Use
  Company Number: US-NAPO PHARMACEUTICALS-2023US001442

PATIENT

DRUGS (1)
  1. MYTESI [Suspect]
     Active Substance: CROFELEMER
     Indication: HIV infection
     Dosage: 125 MG, BID
     Route: 048
     Dates: start: 202302

REACTIONS (3)
  - Weight increased [Unknown]
  - Diarrhoea [Unknown]
  - Off label use [Unknown]
